FAERS Safety Report 20310745 (Version 1)
Quarter: 2022Q1

REPORT INFORMATION
  Report Type: Spontaneous
  Country: US (occurrence: None)
  Receive Date: 20220107
  Receipt Date: 20220107
  Transmission Date: 20220423
  Serious: Yes (Life-Threatening, Hospitalization, Disabling)
  Sender: FDA-Public Use
  Company Number: None

PATIENT
  Age: 54 Year
  Sex: Male
  Weight: 75 kg

DRUGS (1)
  1. REGEN-COV [Suspect]
     Active Substance: CASIRIVIMAB\IMDEVIMAB
     Indication: COVID-19 prophylaxis
     Dates: start: 20211216, end: 20211216

REACTIONS (6)
  - Hypertension [None]
  - Headache [None]
  - Mental status changes [None]
  - White matter lesion [None]
  - Central nervous system leukaemia [None]
  - Autoimmune disorder [None]

NARRATIVE: CASE EVENT DATE: 20211226
